FAERS Safety Report 6371249-6 (Version None)
Quarter: 2009Q3

REPORT INFORMATION
  Report Type: 
  Country: None (occurrence: None)
  Receive Date: 20090923
  Receipt Date: 20080612
  Transmission Date: 20100115
  Serious: Yes (Hospitalization)
  Sender: FDA-Public Use
  Company Number: US-ASTRAZENECA-2007UW01955

PATIENT
  Age: 586 Month
  Sex: Female
  Weight: 82.6 kg

DRUGS (29)
  1. SEROQUEL [Suspect]
     Indication: SCHIZOPHRENIA
     Route: 048
     Dates: start: 19980101, end: 20040101
  2. SEROQUEL [Suspect]
     Indication: BIPOLAR I DISORDER
     Route: 048
     Dates: start: 19980101, end: 20040101
  3. SEROQUEL [Suspect]
     Route: 048
     Dates: start: 20050715
  4. SEROQUEL [Suspect]
     Route: 048
     Dates: start: 20050715
  5. GEODON [Concomitant]
     Dates: start: 20040101
  6. ZYPREXA [Concomitant]
     Dates: start: 20010101, end: 20040101
  7. PROZAC [Concomitant]
  8. GLUCOPHAGE [Concomitant]
     Dates: start: 20060401
  9. CRESTOR [Concomitant]
     Dates: start: 20060501
  10. PROMETHAZINE [Concomitant]
  11. ALPRAZOLAM [Concomitant]
  12. PROP-N/APAP [Concomitant]
  13. TRAMADOL HCL [Concomitant]
  14. METHYLIN [Concomitant]
  15. AMITRIPTYLINE [Concomitant]
  16. CEPHADYN [Concomitant]
  17. GABAPENTIN [Concomitant]
  18. PROPRAN/HCTZ [Concomitant]
  19. GLYCOLAX [Concomitant]
  20. AZITHROMYCIN [Concomitant]
  21. NITROFUR [Concomitant]
  22. CYCLOBENZAPRINE [Concomitant]
  23. ELAVIL [Concomitant]
     Dates: start: 20050719
  24. HYDROCHLOROTHIAZIDE [Concomitant]
     Dates: start: 20050719
  25. XANAX [Concomitant]
     Dates: start: 20050719
  26. LAXAPRO [Concomitant]
     Dates: start: 20050719
  27. LEVAQUIN [Concomitant]
     Dosage: 500 IV
     Dates: start: 20050719
  28. PREMARIN [Concomitant]
     Route: 048
     Dates: start: 20060223
  29. SYNTHROID [Concomitant]
     Route: 048
     Dates: start: 20070319

REACTIONS (7)
  - BLOOD CHOLESTEROL INCREASED [None]
  - BLOOD TRIGLYCERIDES INCREASED [None]
  - DIABETES MELLITUS [None]
  - PNEUMONIA [None]
  - SUICIDE ATTEMPT [None]
  - TYPE 2 DIABETES MELLITUS [None]
  - WEIGHT INCREASED [None]
